FAERS Safety Report 5493599-8 (Version None)
Quarter: 2007Q4

REPORT INFORMATION
  Report Type: 
  Country: None (occurrence: None)
  Receive Date: 20071015
  Receipt Date: 20070824
  Transmission Date: 20080405
  Serious: No
  Sender: FDA-Public Use
  Company Number: 2007SP002995

PATIENT
  Age: 50 Year
  Sex: Female
  Weight: 64.8644 kg

DRUGS (3)
  1. LUNESTA [Suspect]
     Indication: CIRCADIAN RHYTHM SLEEP DISORDER
     Dosage: 1 MG;PRN;ORAL
     Route: 048
     Dates: start: 20070101, end: 20070601
  2. VALSARTAN [Concomitant]
  3. VITAMINS [Concomitant]

REACTIONS (2)
  - DEPRESSION [None]
  - DYSGEUSIA [None]
